FAERS Safety Report 4638105-2 (Version None)
Quarter: 2005Q2

REPORT INFORMATION
  Report Type: 
  Country: None (occurrence: None)
  Receive Date: 20050418
  Receipt Date: 20050411
  Transmission Date: 20051028
  Serious: Yes (Other)
  Sender: FDA-Public Use
  Company Number: PHBS2005JP05230

PATIENT
  Age: 70 Year
  Sex: Male

DRUGS (1)
  1. LAMISIL [Suspect]
     Route: 048
     Dates: start: 20040701

REACTIONS (3)
  - GASTRIC CANCER [None]
  - GASTRIC ULCER [None]
  - GASTROINTESTINAL DISORDER [None]
